FAERS Safety Report 17656693 (Version 2)
Quarter: 2020Q2

REPORT INFORMATION
  Report Type: Spontaneous
  Country: JP (occurrence: JP)
  Receive Date: 20200410
  Receipt Date: 20200617
  Transmission Date: 20200713
  Serious: Yes (Other)
  Sender: FDA-Public Use
  Company Number: NVSJ2020JP003818

PATIENT
  Age: 79 Year
  Sex: Female
  Weight: 45 kg

DRUGS (6)
  1. EXELON PATCH [Suspect]
     Active Substance: RIVASTIGMINE
     Dosage: PATCH7.5(CM2)
     Route: 062
  2. EXELON PATCH [Suspect]
     Active Substance: RIVASTIGMINE
     Dosage: PATCH5(CM2)
     Route: 062
  3. EXELON PATCH [Suspect]
     Active Substance: RIVASTIGMINE
     Dosage: PATCH7.5(CM2)
     Route: 062
  4. EXELON PATCH [Suspect]
     Active Substance: RIVASTIGMINE
     Dosage: PATCH10(CM2)
     Route: 062
  5. EXELON PATCH [Suspect]
     Active Substance: RIVASTIGMINE
     Dosage: PATCH10(CM2)
     Route: 062
  6. EXELON PATCH [Suspect]
     Active Substance: RIVASTIGMINE
     Indication: DEMENTIA ALZHEIMER^S TYPE
     Dosage: PATCH5(CM2)
     Route: 062

REACTIONS (15)
  - Hallucination, auditory [Unknown]
  - Parkinsonism [Unknown]
  - Dropped head syndrome [Recovered/Resolved]
  - Fear [Unknown]
  - Hallucination, visual [Unknown]
  - Fall [Unknown]
  - Affect lability [Unknown]
  - Parkinson^s disease [Unknown]
  - Reduced facial expression [Unknown]
  - Parkinsonian gait [Unknown]
  - Resting tremor [Recovering/Resolving]
  - Anxiety [Unknown]
  - Torticollis [Recovered/Resolved]
  - Tremor [Recovering/Resolving]
  - Neck pain [Recovered/Resolved]
